FAERS Safety Report 7672648-2 (Version None)
Quarter: 2011Q3

REPORT INFORMATION
  Report Type: 
  Country: None (occurrence: None)
  Receive Date: 20110809
  Receipt Date: 20110729
  Transmission Date: 20111222
  Serious: Yes (Disabling, Other)
  Sender: FDA-Public Use
  Company Number: JP-PFIZER INC-2011160729

PATIENT
  Age: 85 Year
  Sex: Female

DRUGS (3)
  1. ZOSYN [Suspect]
     Indication: URINARY TRACT INFECTION
     Dosage: 4.5 G, 3X/DAY
     Route: 041
     Dates: start: 20110506, end: 20110509
  2. ACETYLCYSTEINE [Concomitant]
     Dosage: 6 ML, 1X/DAY
     Dates: start: 20110316, end: 20110726
  3. MIYA BM [Concomitant]
     Dosage: 3 G, 1X/DAY
     Route: 048
     Dates: start: 20110316, end: 20110519

REACTIONS (3)
  - GENERALISED ERYTHEMA [None]
  - DIARRHOEA [None]
  - RENAL TUBULAR NECROSIS [None]
